FAERS Safety Report 24206774 (Version 2)
Quarter: 2024Q4

REPORT INFORMATION
  Report Type: Spontaneous
  Country: JP (occurrence: JP)
  Receive Date: 20240813
  Receipt Date: 20241213
  Transmission Date: 20250114
  Serious: Yes (Other)
  Sender: JAZZ
  Company Number: JP-JAZZ PHARMACEUTICALS-2024-JP-011644

PATIENT
  Age: 68 Year
  Sex: Male

DRUGS (2)
  1. VYXEOS [Suspect]
     Active Substance: CYTARABINE\DAUNORUBICIN
     Indication: Acute myeloid leukaemia
     Dosage: 100 UNIT DAILY
     Dates: start: 20240711
  2. VYXEOS [Suspect]
     Active Substance: CYTARABINE\DAUNORUBICIN
     Dosage: 100 UNIT DAILY
     Route: 042
     Dates: start: 20240717, end: 20240721

REACTIONS (4)
  - Drug eruption [Recovered/Resolved]
  - Cytarabine syndrome [Not Recovered/Not Resolved]
  - Stomatitis [Not Recovered/Not Resolved]
  - Monocyte count increased [Unknown]

NARRATIVE: CASE EVENT DATE: 20240101
